FAERS Safety Report 21773632 (Version 1)
Quarter: 2022Q4

REPORT INFORMATION
  Report Type: Other
  Country: US (occurrence: None)
  Receive Date: 20221223
  Receipt Date: 20221223
  Transmission Date: 20230112
  Serious: Yes (Hospitalization)
  Sender: FDA-Public Use
  Company Number: US-ROCHE-3246121

PATIENT
  Sex: Female

DRUGS (2)
  1. HERCEPTIN [Suspect]
     Active Substance: TRASTUZUMAB
     Indication: HER2 positive breast cancer
     Route: 065
  2. PERJETA [Suspect]
     Active Substance: PERTUZUMAB
     Indication: HER2 positive breast cancer
     Route: 065

REACTIONS (8)
  - Infection [Unknown]
  - Necrosis [Unknown]
  - Injury [Unknown]
  - Mental impairment [Unknown]
  - Brain injury [Unknown]
  - Depression [Unknown]
  - Illness [Unknown]
  - Appetite disorder [Unknown]
